FAERS Safety Report 9168028 (Version 3)
Quarter: 2013Q4

REPORT INFORMATION
  Report Type: Report from Study
  Country: JP (occurrence: JP)
  Receive Date: 20130318
  Receipt Date: 20131118
  Transmission Date: 20140711
  Serious: Yes (Other)
  Sender: FDA-Public Use
  Company Number: JP-VERTEX PHARMACEUTICALS INC.-2013-003610

PATIENT
  Age: 62 Year
  Sex: Male

DRUGS (13)
  1. VX-950 (TELAPREVIR) [Suspect]
     Indication: CHRONIC HEPATITIS C
     Dosage: 1500 MG, QD
     Route: 048
     Dates: start: 20120904, end: 20121119
  2. REBETOL [Suspect]
     Indication: CHRONIC HEPATITIS C
     Dosage: 800 MG, QD
     Route: 048
     Dates: start: 20120904, end: 20120924
  3. REBETOL [Suspect]
     Dosage: 400 MG, QD
     Route: 048
     Dates: start: 20120925, end: 20121217
  4. REBETOL [Suspect]
     Dosage: 800 MG, QD
     Route: 048
     Dates: start: 20121218, end: 20130212
  5. PEGINTERFERON ALFA-2B [Suspect]
     Indication: CHRONIC HEPATITIS C
     Dosage: 1.5 ?G/KG, QW
     Route: 058
     Dates: start: 20120904, end: 20130212
  6. CALONAL [Concomitant]
     Dosage: 1200 MG, QD/PRN
     Route: 048
     Dates: start: 20120904, end: 20121002
  7. GASTER D [Concomitant]
     Dosage: 20 MG, QD/PRN
     Route: 048
     Dates: start: 20120904, end: 20121002
  8. FEBURIC [Concomitant]
     Dosage: 10 MG, QD
     Route: 048
     Dates: start: 20120907
  9. UREPEARL [Concomitant]
     Dosage: UNK UNK, PRN
     Route: 061
     Dates: start: 20121023
  10. PURSENNID [Concomitant]
     Dosage: 12 MG, QD/PRN
     Route: 048
     Dates: start: 20121116
  11. PURSENNID [Concomitant]
     Dosage: 12 MG, QD
     Route: 048
     Dates: end: 20121121
  12. ACECOL [Concomitant]
     Dosage: 2 MG, QD
     Route: 048
     Dates: start: 20120904, end: 20121003
  13. AMLODIPINE [Concomitant]
     Dosage: 5 MG, QD
     Route: 048
     Dates: start: 20120904, end: 20121003

REACTIONS (2)
  - Neutrophil count decreased [Recovered/Resolved]
  - Retinopathy [Recovered/Resolved]
